FAERS Safety Report 5866472-0 (Version None)
Quarter: 2008Q3

REPORT INFORMATION
  Report Type: 
  Country: None (occurrence: None)
  Receive Date: 20080902
  Receipt Date: 20080902
  Transmission Date: 20090109
  Serious: Yes (Hospitalization)
  Sender: FDA-Public Use
  Company Number: PHEH1998US00349

PATIENT
  Sex: Male

DRUGS (13)
  1. SANDIMMUNE [Suspect]
     Route: 048
     Dates: start: 19960520
  2. PREDNISONE TAB [Concomitant]
  3. REGULAR HUMULIN INSULIN (INSULIN HUMAN) [Concomitant]
  4. LASIX [Concomitant]
  5. NITROGLYCERIN [Concomitant]
  6. NYSTATIN [Concomitant]
  7. PROCARDIA [Concomitant]
  8. SEPTRA DS [Concomitant]
  9. CALCIUM [Concomitant]
  10. GLUCOTROL [Concomitant]
  11. IMURAN [Concomitant]
  12. ZOVIRAX [Concomitant]
  13. PRAVACHOL [Concomitant]

REACTIONS (1)
  - TRANSPLANT REJECTION [None]
